FAERS Safety Report 8087818-1 (Version None)
Quarter: 2012Q1

REPORT INFORMATION
  Report Type: 
  Country: None (occurrence: None)
  Receive Date: 20120128
  Receipt Date: 20110427
  Transmission Date: 20120608
  Serious: No
  Sender: FDA-Public Use
  Company Number: US-ABBOTT-11P-163-0723039-00

PATIENT
  Sex: Female

DRUGS (4)
  1. HUMIRA [Suspect]
     Indication: PSORIASIS
     Dosage: STOPPED 3 WKS AGO; 1 IN 2 WEEKS
     Route: 058
     Dates: start: 20110201, end: 20110401
  2. TOPROL-XL [Concomitant]
     Indication: PRODUCT USED FOR UNKNOWN INDICATION
  3. QUINAPRIL [Concomitant]
     Indication: PRODUCT USED FOR UNKNOWN INDICATION
  4. FUROSEMIDE [Concomitant]
     Indication: FLUID OVERLOAD

REACTIONS (4)
  - GOUT [None]
  - PAIN [None]
  - INFLUENZA [None]
  - PAIN IN EXTREMITY [None]
